FAERS Safety Report 4575860-4 (Version None)
Quarter: 2005Q1

REPORT INFORMATION
  Report Type: 
  Country: None (occurrence: None)
  Receive Date: 20050201
  Receipt Date: 20050201
  Transmission Date: 20050727
  Serious: Yes (Other)
  Sender: FDA-Public Use
  Company Number: None

PATIENT
  Age: 55 Year
  Sex: Female
  Weight: 68.0396 kg

DRUGS (2)
  1. OMEPRAZOLE [Suspect]
     Indication: GASTROOESOPHAGEAL REFLUX DISEASE
     Dosage: 2 CAPSULES  EVERY MORNING BY MOUTH
     Route: 048
     Dates: start: 20041001
  2. OMEPRAZOLE [Suspect]
     Indication: HEREDITARY DISORDER
     Dosage: 2 CAPSULES  EVERY MORNING BY MOUTH
     Route: 048
     Dates: start: 20041001

REACTIONS (3)
  - DRUG INEFFECTIVE [None]
  - HEADACHE [None]
  - PHARMACEUTICAL PRODUCT COMPLAINT [None]
